FAERS Safety Report 4754532-7 (Version None)
Quarter: 2005Q3

REPORT INFORMATION
  Report Type: 
  Country: None (occurrence: None)
  Receive Date: 20050829
  Receipt Date: 20041011
  Transmission Date: 20060218
  Serious: No
  Sender: FDA-Public Use
  Company Number: 18971

PATIENT
  Age: 74 Year
  Sex: Female

DRUGS (2)
  1. ZOVIRAX [Suspect]
     Dosage: 1APP FIVE TIMES PER DAY
     Route: 061
     Dates: start: 20041004
  2. ABREVA [Concomitant]
     Route: 061
     Dates: start: 20041008, end: 20041010

REACTIONS (1)
  - DRUG INEFFECTIVE [None]
